FAERS Safety Report 20906544 (Version 1)
Quarter: 2022Q2

REPORT INFORMATION
  Report Type: Spontaneous
  Country: SK (occurrence: SK)
  Receive Date: 20220602
  Receipt Date: 20220602
  Transmission Date: 20220721
  Serious: Yes (Other)
  Sender: FDA-Public Use
  Company Number: SK-BAYER-2022A077244

PATIENT
  Age: 65 Year
  Sex: Male

DRUGS (1)
  1. EYLEA [Suspect]
     Active Substance: AFLIBERCEPT
     Indication: Product used for unknown indication
     Dosage: TOTAL OF 19 INJECTIONS, SOLUTION FOR INJECTION, STRENGTH: 40MG/ML

REACTIONS (3)
  - Retinal oedema [Unknown]
  - Epiretinal membrane [Unknown]
  - Cataract [Unknown]
